FAERS Safety Report 23015438 (Version 6)
Quarter: 2024Q1

REPORT INFORMATION
  Report Type: Spontaneous
  Country: US (occurrence: US)
  Receive Date: 20231002
  Receipt Date: 20240301
  Transmission Date: 20240410
  Serious: No
  Sender: FDA-Public Use
  Company Number: US-PFIZER INC-202300305274

PATIENT
  Age: 15 Year
  Sex: Male

DRUGS (2)
  1. GENOTROPIN [Suspect]
     Active Substance: SOMATROPIN
     Dosage: 2 MG, ALTERNATE DAY
  2. GENOTROPIN [Suspect]
     Active Substance: SOMATROPIN
     Dosage: 2.2 MG, ALTERNATE DAY

REACTIONS (8)
  - Mood swings [Unknown]
  - Depression [Unknown]
  - Irritability [Unknown]
  - Device leakage [Unknown]
  - Exposure via skin contact [Unknown]
  - Injection site discharge [Unknown]
  - Product availability issue [Unknown]
  - Therapy interrupted [Unknown]
